FAERS Safety Report 17438272 (Version 3)
Quarter: 2020Q1

REPORT INFORMATION
  Report Type: Report from Study
  Country: BR (occurrence: BR)
  Receive Date: 20200220
  Receipt Date: 20200330
  Transmission Date: 20200409
  Serious: Yes (Other)
  Sender: FDA-Public Use
  Company Number: PHHY2019BR092370

PATIENT
  Age: 56 Year
  Sex: Female
  Weight: 77 kg

DRUGS (11)
  1. SANDOSTATIN LAR DEPOT [Suspect]
     Active Substance: OCTREOTIDE ACETATE
     Dosage: EVERY 21 DAYS
     Route: 065
     Dates: start: 20190713
  2. SANDOSTATIN LAR DEPOT [Suspect]
     Active Substance: OCTREOTIDE ACETATE
     Dosage: UNK
     Route: 065
  3. CABERGOLINE. [Concomitant]
     Active Substance: CABERGOLINE
     Indication: PRODUCT USED FOR UNKNOWN INDICATION
     Dosage: UNK
     Route: 065
  4. SANDOSTATIN LAR DEPOT [Suspect]
     Active Substance: OCTREOTIDE ACETATE
     Indication: ACROMEGALY
     Dosage: 30 MG, UNK
     Route: 065
     Dates: start: 200801
  5. SANDOSTATIN LAR DEPOT [Suspect]
     Active Substance: OCTREOTIDE ACETATE
     Dosage: EVERY 21 DAYS
     Route: 065
     Dates: start: 20200307
  6. SANDOSTATIN LAR DEPOT [Suspect]
     Active Substance: OCTREOTIDE ACETATE
     Indication: NEOPLASM MALIGNANT
     Dosage: 30 MG, EVERY 21 DAYS
     Route: 065
     Dates: start: 201810
  7. SANDOSTATIN LAR DEPOT [Suspect]
     Active Substance: OCTREOTIDE ACETATE
     Dosage: UNK
     Route: 065
  8. SUPREMA [Concomitant]
     Active Substance: ESTRADIOL\NORETHINDRONE ACETATE
     Indication: PRODUCT USED FOR UNKNOWN INDICATION
     Dosage: UNK
     Route: 065
  9. SANDOSTATIN LAR DEPOT [Suspect]
     Active Substance: OCTREOTIDE ACETATE
     Dosage: EVERY 21 DAYS
     Route: 065
     Dates: start: 20190530
  10. SANDOSTATIN LAR DEPOT [Suspect]
     Active Substance: OCTREOTIDE ACETATE
     Dosage: EVERY 21 DAYS
     Route: 065
     Dates: start: 20190615
  11. SANDOSTATIN LAR DEPOT [Suspect]
     Active Substance: OCTREOTIDE ACETATE
     Dosage: 30 MG
     Route: 065
     Dates: start: 200801

REACTIONS (35)
  - Arthralgia [Not Recovered/Not Resolved]
  - Swelling [Not Recovered/Not Resolved]
  - Joint dislocation [Unknown]
  - Osteoarthritis [Unknown]
  - Pain [Not Recovered/Not Resolved]
  - Cartilage injury [Not Recovered/Not Resolved]
  - Spinal pain [Unknown]
  - Muscular weakness [Not Recovered/Not Resolved]
  - Fluid retention [Not Recovered/Not Resolved]
  - Tension [Unknown]
  - Osteoporosis [Unknown]
  - Somnolence [Unknown]
  - Glucose tolerance impaired [Unknown]
  - Abdominal discomfort [Not Recovered/Not Resolved]
  - Chest injury [Recovered/Resolved]
  - Visual impairment [Unknown]
  - Disturbance in attention [Unknown]
  - Memory impairment [Unknown]
  - Thyroid mass [Unknown]
  - Fatigue [Unknown]
  - Scoliosis [Unknown]
  - Abnormal faeces [Unknown]
  - Cholelithiasis [Recovering/Resolving]
  - Benign ovarian tumour [Unknown]
  - Endometrial hyperplasia [Unknown]
  - Musculoskeletal pain [Unknown]
  - Constipation [Not Recovered/Not Resolved]
  - Spinal column injury [Not Recovered/Not Resolved]
  - Inappropriate schedule of product administration [Not Recovered/Not Resolved]
  - Skin discolouration [Not Recovered/Not Resolved]
  - Haematoma [Not Recovered/Not Resolved]
  - Hormone level abnormal [Recovering/Resolving]
  - Injury [Unknown]
  - Lung hyperinflation [Unknown]
  - Abdominal distension [Unknown]

NARRATIVE: CASE EVENT DATE: 2008
